FAERS Safety Report 8001420-9 (Version None)
Quarter: 2011Q4

REPORT INFORMATION
  Report Type: 
  Country: None (occurrence: None)
  Receive Date: 20111222
  Receipt Date: 20111215
  Transmission Date: 20120403
  Serious: Yes (Other)
  Sender: FDA-Public Use
  Company Number: US-JNJFOC-20111207553

PATIENT
  Age: 2 Year
  Sex: Female
  Weight: 13.61 kg

DRUGS (2)
  1. PEPCID COMPLETE [Suspect]
     Route: 048
  2. PEPCID COMPLETE [Suspect]
     Indication: PRODUCT USED FOR UNKNOWN INDICATION
     Route: 048
     Dates: start: 20111215, end: 20111215

REACTIONS (2)
  - ACCIDENTAL OVERDOSE [None]
  - ACCIDENTAL DRUG INTAKE BY CHILD [None]
